FAERS Safety Report 22750714 (Version 2)
Quarter: 2024Q1

REPORT INFORMATION
  Report Type: Report from Study
  Country: US (occurrence: US)
  Receive Date: 20230726
  Receipt Date: 20240212
  Transmission Date: 20240410
  Serious: Yes (Hospitalization, Congenital Anomaly, Other)
  Sender: FDA-Public Use
  Company Number: US-UCBSA-2023036581

PATIENT
  Sex: Female
  Weight: 2.806 kg

DRUGS (32)
  1. CERTOLIZUMAB PEGOL [Suspect]
     Active Substance: CERTOLIZUMAB PEGOL
     Indication: Rheumatoid arthritis
     Dosage: 200 MILLIGRAM, 2 MONTH
     Route: 064
     Dates: start: 20220301, end: 20230201
  2. CERTOLIZUMAB PEGOL [Suspect]
     Active Substance: CERTOLIZUMAB PEGOL
     Indication: Ankylosing spondylitis
     Dosage: 400 MILLIGRAM, 1.3 MONTH
     Route: 064
     Dates: start: 20230215, end: 20230527
  3. CERTOLIZUMAB PEGOL [Suspect]
     Active Substance: CERTOLIZUMAB PEGOL
     Indication: Crohn^s disease
  4. METOCLOPRAMIDE [Concomitant]
     Active Substance: METOCLOPRAMIDE
     Indication: Nausea
     Dosage: 10 MILLIGRAM
     Route: 064
     Dates: start: 20221111, end: 20221215
  5. ASPIRIN [Concomitant]
     Active Substance: ASPIRIN
     Indication: Pre-eclampsia
     Dosage: 81 MILLIGRAM, ONCE DAILY (QD)
     Route: 064
     Dates: start: 20221210, end: 20230526
  6. CAFFEINE [Concomitant]
     Active Substance: CAFFEINE
     Indication: Therapy cessation
     Dosage: 5.5 SERVING, 1 WEEK
     Route: 064
     Dates: start: 20221101, end: 20230126
  7. COFFEE COAL [Concomitant]
     Indication: Product used for unknown indication
     Dosage: 06 OZ, 1 DAY
     Route: 064
     Dates: start: 20230127, end: 20230527
  8. INFLUENZA VIRUS VACCINE [Concomitant]
     Active Substance: INFLUENZA VIRUS VACCINE
     Indication: Immunisation
     Dosage: 1 DOSAGE FORM, ONCE DAILY (QD)
     Route: 064
     Dates: start: 20221022, end: 20221022
  9. MAGNESIUM [Concomitant]
     Active Substance: MAGNESIUM
     Indication: Migraine
     Dosage: 400 MILLIGRAM, ONCE DAILY (QD)
     Route: 064
     Dates: start: 20230106, end: 20230228
  10. OMEPRAZOLE [Concomitant]
     Active Substance: OMEPRAZOLE
     Indication: Dyspepsia
     Dosage: 20 MILLIGRAM, 2X/DAY (BID)
     Route: 064
     Dates: start: 20220916, end: 20230527
  11. PEPCID [Concomitant]
     Active Substance: FAMOTIDINE
     Indication: Dyspepsia
     Dosage: 20 MILLIGRAM, ONCE DAILY (QD)
     Route: 064
     Dates: start: 20220916, end: 20230402
  12. PEPCID [Concomitant]
     Active Substance: FAMOTIDINE
     Dosage: 40 MILLIGRAM, ONCE DAILY (QD)
     Route: 048
     Dates: start: 20230403, end: 20230527
  13. PFIZER-BIONTECH COVID-19 VACCINE [Concomitant]
     Active Substance: TOZINAMERAN
     Indication: Immunisation
     Dosage: 1 DOSAGE FORM, ONCE DAILY (QD)
     Route: 064
     Dates: start: 20221014, end: 20221014
  14. MINERALS\VITAMINS [Concomitant]
     Active Substance: MINERALS\VITAMINS
     Indication: Product used for unknown indication
     Dosage: 1 DOSAGE FORM, ONCE DAILY (QD)
     Route: 064
     Dates: start: 20220715, end: 20230527
  15. PROBIOTICS NOS [Concomitant]
     Active Substance: PROBIOTICS NOS
     Indication: Antibiotic therapy
     Dosage: 1 DOSAGE FORM, ONCE DAILY (QD)
     Route: 064
     Dates: start: 20230306, end: 20230313
  16. SYNTHROID [Concomitant]
     Active Substance: LEVOTHYROXINE SODIUM
     Indication: Hypothyroidism
     Dosage: 88 MILLIGRAM, ONCE DAILY (QD)
     Route: 064
     Dates: start: 20220916, end: 20230319
  17. SYNTHROID [Concomitant]
     Active Substance: LEVOTHYROXINE SODIUM
     Dosage: 100 MILLIGRAM, ONCE DAILY (QD)
     Route: 048
     Dates: start: 20230320, end: 20230527
  18. TETANUS TOXOID, REDUCED DIPHTHERIA TOXOID AND ACELLULAR PERTUSSIS VACC [Concomitant]
     Active Substance: TETANUS TOXOID, REDUCED DIPHTHERIA TOXOID AND ACELLULAR PERTUSSIS VACCINE ADSORBED, TDAP
     Indication: Immunisation
     Dosage: 1 DOSAGE FORM, ONCE DAILY (QD)
     Route: 064
     Dates: start: 20230414, end: 20230414
  19. VITAMIN B6 [Concomitant]
     Active Substance: PYRIDOXINE HYDROCHLORIDE
     Indication: Nausea
     Dosage: 50 MILLIGRAM, 3X/DAY (TID)
     Route: 064
     Dates: start: 20221103, end: 20221206
  20. VITAMIN B6 [Concomitant]
     Active Substance: PYRIDOXINE HYDROCHLORIDE
     Dosage: 100 MILLIGRAM, 3X/DAY (TID)
     Route: 064
     Dates: start: 20221207, end: 20221215
  21. WELLBUTRIN XL [Concomitant]
     Active Substance: BUPROPION HYDROCHLORIDE
     Indication: Depression
     Dosage: 300 MILLIGRAM, ONCE DAILY (QD)
     Route: 064
     Dates: start: 20220916, end: 20230527
  22. MENTHOL [Concomitant]
     Active Substance: MENTHOL
     Indication: Respiratory tract infection
     Dosage: UNK, 1 DAY
     Route: 064
     Dates: start: 20230306, end: 20230309
  23. TYLENOL [Concomitant]
     Active Substance: ACETAMINOPHEN
     Indication: Respiratory syncytial virus infection
     Dosage: 2 DOSAGE FORM
     Route: 064
     Dates: start: 20221101, end: 20221107
  24. TYLENOL [Concomitant]
     Active Substance: ACETAMINOPHEN
     Indication: Ankylosing spondylitis
     Dosage: 1000 MILLIGRAM, EV 2 WEEKS(QOW)
     Route: 064
     Dates: start: 20221202, end: 20230527
  25. TYLENOL EXTRA STRENGTH [Concomitant]
     Active Substance: ACETAMINOPHEN
     Indication: Respiratory tract infection
     Dosage: 2 DOSAGE FORM, ONCE DAILY (QD)
     Route: 064
     Dates: start: 20230306, end: 20230313
  26. TYLENOL EXTRA STRENGTH [Concomitant]
     Active Substance: ACETAMINOPHEN
     Indication: Rhinovirus infection
     Dosage: 2 DOSAGE FORM, ONCE DAILY (QD)
     Route: 064
     Dates: start: 20230429, end: 20230505
  27. TYLENOL EXTRA STRENGTH [Concomitant]
     Active Substance: ACETAMINOPHEN
     Indication: Enterovirus infection
  28. AUGMENTIN [Concomitant]
     Active Substance: AMOXICILLIN\CLAVULANATE POTASSIUM
     Indication: Sinusitis
     Dosage: 1 DOSAGE FORM, 2X/DAY (BID)
     Route: 064
     Dates: start: 20221225, end: 20221231
  29. AUGMENTIN [Concomitant]
     Active Substance: AMOXICILLIN\CLAVULANATE POTASSIUM
     Indication: Respiratory tract infection
     Dosage: 1 DOSAGE FORM, 2X/DAY (BID)
     Route: 064
     Dates: start: 20230306, end: 20230315
  30. AMOXICILLIN [Concomitant]
     Active Substance: AMOXICILLIN
     Indication: Respiratory syncytial virus infection
     Dosage: 875 MILLIGRAM, ONCE DAILY (QD)
     Route: 064
     Dates: start: 20221101, end: 20221107
  31. MONISTAT 3 [Concomitant]
     Active Substance: MICONAZOLE NITRATE
     Indication: Fungal infection
     Dosage: 1 DAY (TOPICAL-VAGINAL / ANAL)
     Route: 064
     Dates: start: 20221227, end: 20221230
  32. MONISTAT 3 [Concomitant]
     Active Substance: MICONAZOLE NITRATE
     Dosage: 1 DAY (TOPICAL-VAGINAL / ANAL)
     Route: 064
     Dates: start: 20230116, end: 20230119

REACTIONS (5)
  - Congenital diaphragmatic hernia [Unknown]
  - Hernia diaphragmatic repair [Unknown]
  - Premature baby [Unknown]
  - Maternal exposure before pregnancy [Unknown]
  - Maternal exposure during pregnancy [Unknown]

NARRATIVE: CASE EVENT DATE: 20220101
